FAERS Safety Report 5017560-2 (Version None)
Quarter: 2006Q2

REPORT INFORMATION
  Report Type: 
  Country: None (occurrence: None)
  Receive Date: 20060601
  Receipt Date: 20060601
  Transmission Date: 20061013
  Serious: Yes (Hospitalization)
  Sender: FDA-Public Use
  Company Number: None

PATIENT
  Age: 65 Year
  Sex: Male
  Weight: 139.2543 kg

DRUGS (5)
  1. VANCOMYCIN [Suspect]
     Indication: DIABETIC FOOT INFECTION
     Dosage: Q 24 HOURS IV
     Route: 042
  2. ZOSYN [Suspect]
     Indication: OSTEOMYELITIS
     Dosage: Q 6 HOURS IV
     Route: 042
  3. LISINOPRIL [Concomitant]
  4. FUROSEMIDE [Concomitant]
  5. SPIRONOLACTONE [Concomitant]

REACTIONS (2)
  - PETECHIAE [None]
  - RASH MACULO-PAPULAR [None]
